FAERS Safety Report 14668104 (Version 1)
Quarter: 2018Q1

REPORT INFORMATION
  Report Type: Spontaneous
  Country: CA (occurrence: CA)
  Receive Date: 20180322
  Receipt Date: 20180322
  Transmission Date: 20180509
  Serious: Yes (Life-Threatening, Disabling)
  Sender: FDA-Public Use
  Company Number: CA-BAYER-2018-051554

PATIENT
  Age: 46 Year
  Sex: Female
  Weight: 49.89 kg

DRUGS (1)
  1. MIRENA [Suspect]
     Active Substance: LEVONORGESTREL
     Indication: CONTRACEPTION
     Dosage: 20 MCG/24HR, CONT
     Route: 015

REACTIONS (5)
  - Insomnia [Recovering/Resolving]
  - Negative thoughts [Recovering/Resolving]
  - Vision blurred [None]
  - Depression [Recovering/Resolving]
  - Night sweats [Recovering/Resolving]
